FAERS Safety Report 5873970-2 (Version None)
Quarter: 2008Q3

REPORT INFORMATION
  Report Type: 
  Country: None (occurrence: None)
  Receive Date: 20080905
  Receipt Date: 20080905
  Transmission Date: 20090109
  Serious: Yes (Hospitalization)
  Sender: FDA-Public Use
  Company Number: None

PATIENT
  Sex: Male
  Weight: 46.2669 kg

DRUGS (1)
  1. PRIMAXIN [Suspect]
     Indication: BRONCHITIS
     Dosage: 500 MG Q 12 HOURS IV DRIP
     Route: 041
     Dates: start: 20080521, end: 20080620

REACTIONS (3)
  - CONVULSION [None]
  - MENTAL IMPAIRMENT [None]
  - PNEUMONIA STAPHYLOCOCCAL [None]
